FAERS Safety Report 7047488-8 (Version None)
Quarter: 2010Q4

REPORT INFORMATION
  Report Type: 
  Country: None (occurrence: None)
  Receive Date: 20101014
  Receipt Date: 20101014
  Transmission Date: 20110411
  Serious: Yes (Hospitalization)
  Sender: FDA-Public Use
  Company Number: None

PATIENT
  Age: 75 Year
  Sex: Male
  Weight: 104 kg

DRUGS (1)
  1. VANCOMYCIN [Suspect]
     Indication: PNEUMONIA
     Dosage: 1 GM OTHER IV
     Route: 042
     Dates: start: 20100913, end: 20100914

REACTIONS (4)
  - COUGH [None]
  - DYSPNOEA [None]
  - RASH [None]
  - WHEEZING [None]
